FAERS Safety Report 5333434-1 (Version None)
Quarter: 2007Q2

REPORT INFORMATION
  Report Type: 
  Country: None (occurrence: None)
  Receive Date: 20070522
  Receipt Date: 20070522
  Transmission Date: 20071010
  Serious: Yes (Hospitalization)
  Sender: FDA-Public Use
  Company Number: None

PATIENT
  Sex: Female
  Weight: 73 kg

DRUGS (2)
  1. CARBOPLATIN [Suspect]
     Dosage: 606.3 MG
     Dates: start: 20070112, end: 20070518
  2. TAXOL [Suspect]
     Dosage: 316 MG
     Dates: start: 20070112, end: 20070518

REACTIONS (1)
  - NEUTROPENIA [None]
